FAERS Safety Report 23936956 (Version 3)
Quarter: 2024Q2

REPORT INFORMATION
  Report Type: Spontaneous
  Country: FR (occurrence: FR)
  Receive Date: 20240604
  Receipt Date: 20240613
  Transmission Date: 20240716
  Serious: Yes (Other)
  Sender: FDA-Public Use
  Company Number: FR-MYLANLABS-2024M1049132

PATIENT
  Age: 81 Year
  Sex: Male

DRUGS (2)
  1. IMATINIB [Suspect]
     Active Substance: IMATINIB
     Indication: Chronic myeloid leukaemia
     Dosage: 300 MILLIGRAM, QD (3 TABLETS OF 100MG DAILY/ 3 DOSAGE FORM, QD)
     Route: 048
     Dates: start: 2009
  2. GLIVEC [Suspect]
     Active Substance: IMATINIB MESYLATE
     Indication: Chronic myeloid leukaemia
     Dosage: 100 MILLIGRAM
     Route: 065
     Dates: start: 2009

REACTIONS (6)
  - Renal failure [Unknown]
  - Musculoskeletal pain [Unknown]
  - Fatigue [Unknown]
  - Cutaneous symptom [Unknown]
  - Blister [Unknown]
  - Product dose omission issue [Unknown]

NARRATIVE: CASE EVENT DATE: 20230101
